FAERS Safety Report 24449915 (Version 1)
Quarter: 2024Q4

REPORT INFORMATION
  Report Type: Spontaneous
  Country: US (occurrence: None)
  Receive Date: 20241016
  Receipt Date: 20241016
  Transmission Date: 20250114
  Serious: Yes (Hospitalization)
  Sender: Public
  Company Number: None

PATIENT
  Age: 61 Year
  Sex: Male

DRUGS (1)
  1. TIRZEPATIDE [Suspect]
     Active Substance: TIRZEPATIDE
     Indication: Weight decreased
     Dosage: OTHER FREQUENCY : QWEEK;?
     Route: 058

REACTIONS (4)
  - Diarrhoea [None]
  - Vomiting [None]
  - Dehydration [None]
  - Blood potassium decreased [None]

NARRATIVE: CASE EVENT DATE: 20240505
